FAERS Safety Report 13425323 (Version 1)
Quarter: 2017Q2

REPORT INFORMATION
  Report Type: Spontaneous
  Country: US (occurrence: US)
  Receive Date: 20170411
  Receipt Date: 20170411
  Transmission Date: 20170830
  Serious: No
  Sender: FDA-Public Use
  Company Number: US-ASTRAZENECA-2017SE34437

PATIENT
  Age: 23041 Day
  Sex: Female
  Weight: 104.3 kg

DRUGS (7)
  1. ITRAPROP [Concomitant]
     Indication: LUNG DISORDER
     Dosage: FOUR TIMES A DAY
     Route: 055
     Dates: start: 20170309
  2. ALBUTEROL. [Concomitant]
     Active Substance: ALBUTEROL
     Indication: LUNG DISORDER
     Route: 055
     Dates: start: 20170104
  3. PREDNISONE. [Concomitant]
     Active Substance: PREDNISONE
     Indication: LUNG DISORDER
     Route: 048
     Dates: start: 201703
  4. DALIRESP [Suspect]
     Active Substance: ROFLUMILAST
     Indication: CHRONIC OBSTRUCTIVE PULMONARY DISEASE
     Route: 048
     Dates: start: 2014
  5. VENTOLIN [Concomitant]
     Active Substance: ALBUTEROL SULFATE
     Indication: LUNG DISORDER
     Dosage: FOUR TIMES A DAY
     Route: 055
  6. INCRUSE ELLIPTA [Concomitant]
     Active Substance: UMECLIDINIUM BROMIDE
     Indication: LUNG DISORDER
     Route: 055
     Dates: start: 2016
  7. ADVAIR HFA [Concomitant]
     Active Substance: FLUTICASONE PROPIONATE\SALMETEROL XINAFOATE
     Indication: LUNG DISORDER
     Dosage: 250/50 TWO TIMES A DAY
     Route: 055
     Dates: start: 2011

REACTIONS (7)
  - Therapy cessation [Not Recovered/Not Resolved]
  - Hypertension [Not Recovered/Not Resolved]
  - Gait disturbance [Not Recovered/Not Resolved]
  - Pneumonia [Recovered/Resolved]
  - Asbestosis [Not Recovered/Not Resolved]
  - Pulmonary mass [Not Recovered/Not Resolved]
  - Pulmonary air leakage [Not Recovered/Not Resolved]

NARRATIVE: CASE EVENT DATE: 20160323
